FAERS Safety Report 6030831-6 (Version None)
Quarter: 2009Q1

REPORT INFORMATION
  Report Type: 
  Country: None (occurrence: None)
  Receive Date: 20090106
  Receipt Date: 20081222
  Transmission Date: 20090719
  Serious: Yes (Other)
  Sender: FDA-Public Use
  Company Number: GXKR2008NL12211

PATIENT
  Age: 30 Year
  Sex: Female

DRUGS (8)
  1. VINCRISTINE [Suspect]
     Indication: ACUTE LYMPHOCYTIC LEUKAEMIA
     Dosage: 1.5 MG/M2, DAYS 8, 15, 22), MAX. DOSE: 2 MG
  2. PREDNISONE [Suspect]
     Indication: ACUTE LYMPHOCYTIC LEUKAEMIA
     Dosage: 60 MG/M2, DAYS 1-28
  3. CYTARABINE [Suspect]
     Indication: ACUTE LYMPHOCYTIC LEUKAEMIA
     Dosage: 60 MG/M2, DAYS 1, 2, 8, 9, 16 : 1000 MG/M2, DAYS 1-6
  4. METHOTREXATE [Suspect]
     Indication: ACUTE LYMPHOCYTIC LEUKAEMIA
     Dosage: 15 MG, WEEKLY, 3 TIMES, INTRATHECAL
     Route: 037
  5. DAUNORUBICIN HCL [Suspect]
     Indication: ACUTE LYMPHOCYTIC LEUKAEMIA
     Dosage: 45 MG/M2, DAYS 8, 15, 22
  6. CYCLOPHOSPHAMIDE [Suspect]
     Indication: ACUTE LYMPHOCYTIC LEUKAEMIA
     Dosage: 1000 MG/M2, DAY 8 IN FIRST COURSE, DAYS 1, 15 IN SECOND COURSE
  7. THIOGUANINE [Suspect]
     Indication: ACUTE LYMPHOCYTIC LEUKAEMIA
     Dosage: 60 MG/2, DAYS 1-21
  8. AMSACRINE (AMSACRINE) [Suspect]
     Dosage: 120 MG/M2, DAYS 3, 5, 7

REACTIONS (6)
  - ACUTE GRAFT VERSUS HOST DISEASE IN LIVER [None]
  - ACUTE GRAFT VERSUS HOST DISEASE IN SKIN [None]
  - BONE MARROW FAILURE [None]
  - DRUG EXPOSURE DURING PREGNANCY [None]
  - ENTEROCOCCAL BACTERAEMIA [None]
  - STEM CELL TRANSPLANT [None]
